FAERS Safety Report 9879984 (Version 2)
Quarter: 2014Q1

REPORT INFORMATION
  Report Type: Report from Study
  Country: US (occurrence: US)
  Receive Date: 20140207
  Receipt Date: 20140207
  Transmission Date: 20141002
  Serious: Yes (Death)
  Sender: FDA-Public Use
  Company Number: US-ROCHE-1234266

PATIENT
  Age: 64 Year
  Sex: Female
  Weight: 36.87 kg

DRUGS (26)
  1. HERCEPTIN [Suspect]
     Indication: BREAST CANCER
     Dosage: RECEIVED A DOSE ON 07/AUG/2013?MOST RECENT DOSE: 21/AUG/2013
     Route: 042
     Dates: start: 20130403
  2. KADCYLA [Suspect]
     Indication: PRODUCT USED FOR UNKNOWN INDICATION
     Route: 065
     Dates: end: 20131016
  3. TYKERB [Suspect]
     Indication: BREAST CANCER
     Route: 065
  4. FASLODEX [Concomitant]
     Indication: BREAST CANCER
  5. FAMOTIDINE [Concomitant]
     Route: 042
     Dates: start: 20130821
  6. FERRLECIT (UNITED STATES) [Concomitant]
     Route: 042
     Dates: start: 20130821
  7. FERRLECIT (UNITED STATES) [Concomitant]
     Route: 042
     Dates: start: 20130807
  8. EMEND [Concomitant]
     Route: 042
     Dates: start: 20130821
  9. EMEND [Concomitant]
     Route: 042
     Dates: start: 20130807
  10. EMEND [Concomitant]
     Route: 042
     Dates: start: 20130821
  11. EMEND [Concomitant]
     Route: 042
     Dates: start: 20130807
  12. NEULASTA [Concomitant]
     Route: 058
     Dates: start: 20130821
  13. NEULASTA [Concomitant]
     Route: 058
     Dates: start: 20130807
  14. PALONOSETRON [Concomitant]
     Route: 042
     Dates: start: 20130821
  15. PALONOSETRON [Concomitant]
     Route: 042
     Dates: start: 20130807
  16. INFLUENZA VACCINATION [Concomitant]
     Route: 065
     Dates: start: 20130821
  17. INFLUENZA VACCINATION [Concomitant]
     Route: 065
     Dates: start: 20130807
  18. PNEUMOCOCCAL VACCINE [Concomitant]
     Route: 065
     Dates: start: 20130821
  19. PNEUMOCOCCAL VACCINE [Concomitant]
     Route: 065
     Dates: start: 20130807
  20. VITAMIN B12 [Concomitant]
     Route: 065
     Dates: start: 20130821
  21. VITAMIN B12 [Concomitant]
     Route: 065
     Dates: start: 20130807
  22. XGEVA [Concomitant]
     Route: 065
     Dates: start: 20130821
  23. XGEVA [Concomitant]
     Route: 065
     Dates: start: 20130807
  24. FASLODEX [Concomitant]
     Route: 030
     Dates: start: 20130821
  25. FASLODEX [Concomitant]
     Route: 030
     Dates: start: 20130807
  26. ZOMETA [Concomitant]
     Route: 042
     Dates: start: 20130807

REACTIONS (7)
  - Death [Fatal]
  - Rash erythematous [Unknown]
  - Mouth injury [Unknown]
  - Fall [Unknown]
  - Diarrhoea [Unknown]
  - Nausea [Unknown]
  - Vomiting [Unknown]
